FAERS Safety Report 4893691-2 (Version None)
Quarter: 2006Q1

REPORT INFORMATION
  Report Type: 
  Country: None (occurrence: None)
  Receive Date: 20060127
  Receipt Date: 20050315
  Transmission Date: 20060701
  Serious: No
  Sender: FDA-Public Use
  Company Number: US-NOVOPROD-242995

PATIENT
  Age: 53 Year
  Sex: Female
  Weight: 94 kg

DRUGS (43)
  1. NOVOSEVEN [Suspect]
     Indication: SPINAL FUSION SURGERY
     Dosage: 30 UG/KG, UNK
     Route: 042
     Dates: start: 20041122, end: 20041122
  2. NOVOSEVEN [Suspect]
     Route: 042
     Dates: start: 20041122, end: 20041122
  3. NOVOSEVEN [Suspect]
     Route: 042
     Dates: start: 20041122, end: 20041122
  4. LISINOPRIL [Concomitant]
     Indication: HYPERTENSION
     Dosage: 10 MG, QD
     Route: 048
     Dates: start: 20000701
  5. PROTONIX [Concomitant]
     Indication: GASTROOESOPHAGEAL REFLUX DISEASE
     Dosage: 40 MG, QD
     Route: 048
     Dates: start: 20010701
  6. ANCEF [Concomitant]
     Indication: ANTIBIOTIC PROPHYLAXIS
     Dosage: 3 G, QD
     Route: 042
     Dates: start: 20041122, end: 20041126
  7. RANITIDINE [Concomitant]
     Dosage: 100 MG, QD
     Route: 042
     Dates: start: 20041123, end: 20041123
  8. METHADONE [Concomitant]
     Indication: PAIN
     Dosage: 15 MG, QD
     Route: 048
     Dates: start: 20041123
  9. METOCLOPRAMIDE HYDROCHLORIDE [Concomitant]
     Indication: NAUSEA
     Dosage: 10 MG, QD
     Route: 042
     Dates: start: 20041123, end: 20041129
  10. FENTANYL [Concomitant]
     Indication: PAIN
     Dosage: 400 MCG, QD
     Route: 042
     Dates: start: 20041122, end: 20041122
  11. PROMETHAZINE [Concomitant]
     Indication: NAUSEA
     Dosage: 12.5 G, QD
     Route: 042
     Dates: start: 20041123, end: 20041123
  12. DIPHENHYDRAMINE [Concomitant]
     Indication: PRURITUS
     Dosage: 25-100 MG, QD
     Route: 048
     Dates: start: 20041123, end: 20041125
  13. EPHEDRINE [Concomitant]
     Indication: HYPOTENSION
     Dosage: 40 MG, QD
     Route: 042
     Dates: start: 20041122, end: 20041122
  14. PHENYLEPHRINE [Concomitant]
     Indication: HYPOTENSION
     Dosage: 300 MG, QD
     Route: 042
     Dates: start: 20041122, end: 20041122
  15. GENTAMICIN [Concomitant]
     Indication: ANTIBIOTIC PROPHYLAXIS
     Dosage: 60 MG, QD
     Route: 042
     Dates: start: 20041122, end: 20041122
  16. WELLBUTRIN [Concomitant]
     Indication: DEPRESSION
     Dates: start: 20010701
  17. TYLENOL (CAPLET) [Concomitant]
     Indication: PAIN
     Dates: start: 19981201
  18. SUFENTANIL CITRATE [Concomitant]
     Indication: PAIN
     Dates: start: 20041122, end: 20041122
  19. CALCIUM GLUCONATE [Concomitant]
     Indication: HYPOCALCAEMIA
     Dates: start: 20041122, end: 20041123
  20. CALCIUM CHLORIDE DIHYDRATE [Concomitant]
     Indication: HYPOCALCAEMIA
     Dates: start: 20041122, end: 20041122
  21. HEPARIN [Concomitant]
     Indication: PROPHYLAXIS
     Dates: start: 20041123, end: 20041130
  22. PROPOFOL [Concomitant]
     Indication: ANAESTHESIA
     Dates: start: 20041122, end: 20041122
  23. ULTRAM [Concomitant]
     Indication: PAIN
     Dates: start: 20011201, end: 20041122
  24. ONDANSETRON [Concomitant]
     Indication: NAUSEA
     Dates: start: 20041126, end: 20041126
  25. ASCORBIC ACID [Concomitant]
     Indication: MEDICAL DIET
     Dates: start: 20041124, end: 20041130
  26. MULTIVITAMINS, COMBINATIONS [Concomitant]
     Indication: MEDICAL DIET
     Dates: start: 20041124
  27. SENNA [Concomitant]
     Indication: CONSTIPATION
     Dates: start: 20041124
  28. COLACE [Concomitant]
     Indication: CONSTIPATION
     Dates: start: 20041124
  29. MOXIFLOXACIN HCL [Concomitant]
     Indication: PNEUMONIA
     Dates: start: 20041125, end: 20041203
  30. MILK OF MAGNESIA TAB [Concomitant]
     Indication: CONSTIPATION
     Dates: start: 20041128
  31. TRIAZOLAM [Concomitant]
     Indication: INSOMNIA
     Dates: start: 20041127
  32. HYDROMORPHONE HCL [Concomitant]
     Indication: PAIN
     Dates: start: 20041124, end: 20041201
  33. METHOCARBAMOL [Concomitant]
     Indication: MUSCLE SPASMS
     Dates: start: 20041126
  34. PROPOFOL [Concomitant]
     Dates: start: 20041122, end: 20041122
  35. OXYCODONE [Concomitant]
     Dates: start: 20041219
  36. RANITIDINE [Concomitant]
     Dates: start: 20041123, end: 20041123
  37. LACTATED RINGER'S [Concomitant]
     Dosage: 1000 ML, QD
     Route: 042
     Dates: start: 20041122, end: 20041122
  38. PLASMA-LYTE 56 AND DEXTROSE 5% IN PLASTIC CONTAINER [Concomitant]
     Dosage: 18500 ML, QD
     Route: 042
     Dates: start: 20041122, end: 20041122
  39. NORMAL SALINE [Concomitant]
     Dosage: 3150 ML, UNK
     Route: 042
     Dates: start: 20041122, end: 20041123
  40. DEXTROSE W/SODIUM CHLORIDE [Concomitant]
     Dosage: 800 ML, UNK
     Route: 042
     Dates: start: 20041123, end: 20041124
  41. REGLAN                                  /USA/ [Concomitant]
     Indication: NAUSEA
     Dates: start: 20041123, end: 20041129
  42. ONDANSETRON [Concomitant]
     Dates: start: 20041126, end: 20041126
  43. MOXIFLOXACIN HCL [Concomitant]
     Dates: start: 20041125, end: 20041203

REACTIONS (10)
  - ANAEMIA [None]
  - ASPARTATE AMINOTRANSFERASE ABNORMAL [None]
  - ELECTROCARDIOGRAM ST-T CHANGE [None]
  - HEART INJURY [None]
  - PAIN IN EXTREMITY [None]
  - POST PROCEDURAL COMPLICATION [None]
  - PROTHROMBIN LEVEL INCREASED [None]
  - SEROMA [None]
  - THROMBIN-ANTITHROMBIN III COMPLEX INCREASED [None]
  - TROPONIN I INCREASED [None]
